FAERS Safety Report 5786823-5 (Version None)
Quarter: 2008Q2

REPORT INFORMATION
  Report Type: 
  Country: None (occurrence: None)
  Receive Date: 20080618
  Receipt Date: 20080528
  Transmission Date: 20081010
  Serious: Yes (Disabling)
  Sender: FDA-Public Use
  Company Number: 2008S1009085

PATIENT
  Age: 80 Year
  Sex: Female

DRUGS (4)
  1. FLUVASTATIN [Suspect]
  2. HYDROXYCHLOROQUINE SULFATE [Concomitant]
  3. AZATHIOPRINE [Concomitant]
  4. METHOTREXATE [Concomitant]

REACTIONS (1)
  - POLYMYOSITIS [None]
